FAERS Safety Report 13989072 (Version 1)
Quarter: 2017Q3

REPORT INFORMATION
  Report Type: Spontaneous
  Country: JP (occurrence: JP)
  Receive Date: 20170919
  Receipt Date: 20170919
  Transmission Date: 20171128
  Serious: Yes (Death, Other)
  Sender: FDA-Public Use
  Company Number: JP-ROCHE-1937057

PATIENT
  Age: 80 Year
  Sex: Female
  Weight: 38 kg

DRUGS (3)
  1. AVASTIN [Suspect]
     Active Substance: BEVACIZUMAB
     Indication: CERVIX CARCINOMA
     Route: 041
     Dates: start: 20160901, end: 20170217
  2. CARBOPLATIN. [Concomitant]
     Active Substance: CARBOPLATIN
     Indication: CERVIX CARCINOMA
     Dosage: DOSAGE IS UNCERTAIN.
     Route: 041
     Dates: start: 20170127, end: 20170428
  3. PACLITAXEL. [Concomitant]
     Active Substance: PACLITAXEL
     Indication: CERVIX CARCINOMA
     Dosage: DOSAGE IS UNCERTAIN.
     Route: 041
     Dates: start: 20170127, end: 20170428

REACTIONS (4)
  - Duodenal perforation [Fatal]
  - Deep vein thrombosis [Not Recovered/Not Resolved]
  - Peptic ulcer [Unknown]
  - Cervix carcinoma [Fatal]

NARRATIVE: CASE EVENT DATE: 20170218
